FAERS Safety Report 5448157-8 (Version None)
Quarter: 2007Q3

REPORT INFORMATION
  Report Type: 
  Country: None (occurrence: None)
  Receive Date: 20070905
  Receipt Date: 20070823
  Transmission Date: 20080115
  Serious: Yes (Life-Threatening, Hospitalization)
  Sender: FDA-Public Use
  Company Number: TCI2007A04334

PATIENT
  Age: 65 Year
  Sex: Male

DRUGS (3)
  1. ACTOS [Suspect]
     Indication: DIABETES MELLITUS
     Dosage: 15 MG, PER ORAL
     Route: 048
     Dates: start: 20070720, end: 20070821
  2. AMARYL [Concomitant]
  3. LOCHOL        (FLUVASTATIN SODIUM) [Concomitant]

REACTIONS (2)
  - RENAL FAILURE [None]
  - RETROPERITONEAL FIBROSIS [None]
